FAERS Safety Report 7853382-2 (Version None)
Quarter: 2011Q3

REPORT INFORMATION
  Report Type: 
  Country: None (occurrence: None)
  Receive Date: 20110915
  Receipt Date: 20110617
  Transmission Date: 20111222
  Serious: Yes (Hospitalization)
  Sender: FDA-Public Use
  Company Number: 2011028975

PATIENT
  Age: 3 Year
  Sex: Male
  Weight: 13.4718 kg

DRUGS (5)
  1. PRIVIGEN [Suspect]
     Indication: KAWASAKI'S DISEASE
     Dosage: 25 G QD, 25 G DAILY X 2 DOSES INTRAVENOUS (NOT OTHERWISE SPECIFIED)
     Route: 042
     Dates: start: 20110506, end: 20110507
  2. ASPIRIN [Concomitant]
  3. PRIVIGEN [Suspect]
     Indication: KAWASAKI'S DISEASE
     Dosage: INTRAVENOUS (NOT OTHERWISE SPECIFIED)
     Route: 042
  4. FAMOTIDINE [Concomitant]
  5. ACETAMINOPHEN [Concomitant]

REACTIONS (3)
  - HAEMOGLOBIN DECREASED [None]
  - ANTI-ERYTHROCYTE ANTIBODY POSITIVE [None]
  - HAEMOLYSIS [None]
